FAERS Safety Report 8812589 (Version 1)
Quarter: 2012Q4

REPORT INFORMATION
  Report Type: 
  Country: US (occurrence: US)
  Receive Date: 20120927
  Receipt Date: 20120927
  Transmission Date: 20130627
  Serious: Yes (Other)
  Sender: FDA-Public Use
  Company Number: US-CELGENEUS-163-21880-12092340

PATIENT
  Age: 76 Year
  Sex: Female
  Weight: 84.9 kg

DRUGS (1)
  1. REVLIMID [Suspect]
     Indication: MULTIPLE MYELOMA
     Dosage: 25 Milligram
     Route: 048
     Dates: start: 20120822

REACTIONS (2)
  - Nephrolithiasis [Unknown]
  - Restless legs syndrome [Unknown]
